FAERS Safety Report 8611620-2 (Version None)
Quarter: 2012Q3

REPORT INFORMATION
  Report Type: 
  Country: None (occurrence: None)
  Receive Date: 20120809
  Receipt Date: 20120725
  Transmission Date: 20120928
  Serious: Yes (Death, Other)
  Sender: FDA-Public Use
  Company Number: 2012MA009098

PATIENT
  Age: 19 Year
  Sex: Male

DRUGS (3)
  1. OXYCODONE HCL [Suspect]
     Dosage: PO
     Route: 048
  2. KADIAN [Suspect]
     Dosage: PO
     Route: 048
  3. ALPRAZOLAM [Suspect]
     Dosage: PO
     Route: 048

REACTIONS (2)
  - TOXICITY TO VARIOUS AGENTS [None]
  - CARDIO-RESPIRATORY ARREST [None]
